FAERS Safety Report 24747200 (Version 2)
Quarter: 2025Q1

REPORT INFORMATION
  Report Type: Spontaneous
  Country: CA (occurrence: CA)
  Receive Date: 20241218
  Receipt Date: 20250322
  Transmission Date: 20250408
  Serious: Yes (Hospitalization)
  Sender: ABBVIE
  Company Number: CA-LUNDBECK-DKLU4007995

PATIENT
  Age: 76 Year
  Sex: Male

DRUGS (25)
  1. CITALOPRAM [Suspect]
     Active Substance: CITALOPRAM
     Indication: Neuropsychological symptoms
     Route: 048
  2. OLANZAPINE [Suspect]
     Active Substance: OLANZAPINE
     Indication: Neuropsychological symptoms
     Dosage: 2.5 MILLIGRAM
     Route: 065
  3. RIVASTIGMINE [Suspect]
     Active Substance: RIVASTIGMINE
     Indication: Dementia with Lewy bodies
     Route: 062
  4. RIVASTIGMINE [Suspect]
     Active Substance: RIVASTIGMINE
     Indication: Dementia with Lewy bodies
     Route: 062
  5. RIVASTIGMINE [Suspect]
     Active Substance: RIVASTIGMINE
     Indication: Dementia with Lewy bodies
     Dosage: 1.5 MILLIGRAM
     Route: 062
  6. RIVASTIGMINE [Suspect]
     Active Substance: RIVASTIGMINE
     Indication: Dementia with Lewy bodies
     Dosage: 13.3 MILLIGRAM
     Route: 062
  7. RIVASTIGMINE [Suspect]
     Active Substance: RIVASTIGMINE
     Indication: Dementia with Lewy bodies
     Dosage: 1.5 MILLIGRAM
     Route: 062
  8. RISPERIDONE [Suspect]
     Active Substance: RISPERIDONE
     Indication: Neuropsychological symptoms
     Dosage: 0.5 MILLIGRAM, BID, AS REQUIRED
     Route: 065
  9. RISPERIDONE [Suspect]
     Active Substance: RISPERIDONE
     Indication: Neuropsychological symptoms
     Dosage: 0.25 MILLIGRAM
     Route: 065
  10. CLONAZEPAM [Suspect]
     Active Substance: CLONAZEPAM
     Indication: Neuropsychological symptoms
     Route: 065
  11. CLONAZEPAM [Suspect]
     Active Substance: CLONAZEPAM
     Indication: Neuropsychological symptoms
     Dosage: 0.5 MILLIGRAM
     Route: 065
  12. TRAZODONE [Suspect]
     Active Substance: TRAZODONE HYDROCHLORIDE
     Indication: Dementia with Lewy bodies
     Dosage: 50 MILLIGRAM, TID, THREE TIMES DAILY
     Route: 065
  13. TRAZODONE [Suspect]
     Active Substance: TRAZODONE HYDROCHLORIDE
     Indication: Dementia with Lewy bodies
     Route: 065
  14. TRAZODONE [Suspect]
     Active Substance: TRAZODONE HYDROCHLORIDE
     Indication: Dementia with Lewy bodies
     Dosage: 100 MILLIGRAM
     Route: 065
  15. QUETIAPINE [Suspect]
     Active Substance: QUETIAPINE
     Indication: Dementia with Lewy bodies
     Dosage: TIME INTERVAL: 0.33 DAYS: THREE TIMES DAILY
     Route: 065
  16. QUETIAPINE [Suspect]
     Active Substance: QUETIAPINE
     Indication: Dementia with Lewy bodies
     Dosage: 25 MILLIGRAM
     Route: 065
  17. QUETIAPINE [Suspect]
     Active Substance: QUETIAPINE
     Indication: Dementia with Lewy bodies
     Route: 065
  18. QUETIAPINE [Suspect]
     Active Substance: QUETIAPINE
     Indication: Dementia with Lewy bodies
     Dosage: 100 MILLIGRAM
     Route: 065
  19. QUETIAPINE [Suspect]
     Active Substance: QUETIAPINE
     Indication: Dementia with Lewy bodies
     Dosage: 25 MILLIGRAM, BID, DOSE INCREASED AND LATER TREATMENT STOPPED
     Route: 065
  20. QUETIAPINE [Suspect]
     Active Substance: QUETIAPINE
     Indication: Dementia with Lewy bodies
     Route: 065
  21. QUETIAPINE [Suspect]
     Active Substance: QUETIAPINE
     Indication: Dementia with Lewy bodies
     Dosage: 25 MILLIGRAM
     Route: 065
  22. QUETIAPINE [Suspect]
     Active Substance: QUETIAPINE
     Indication: Dementia with Lewy bodies
     Dosage: 12.5 MILLIGRAM
     Route: 065
  23. LORAZEPAM [Suspect]
     Active Substance: LORAZEPAM
     Indication: Dementia with Lewy bodies
     Route: 051
  24. LOXAPINE [Suspect]
     Active Substance: LOXAPINE
     Indication: Neuropsychological symptoms
     Route: 051
  25. CANDESARTAN CILEXETIL [Concomitant]
     Active Substance: CANDESARTAN CILEXETIL
     Indication: Product used for unknown indication
     Route: 065

REACTIONS (2)
  - Drug ineffective for unapproved indication [Unknown]
  - Product use in unapproved indication [Unknown]
